FAERS Safety Report 6700555-8 (Version None)
Quarter: 2010Q2

REPORT INFORMATION
  Report Type: 
  Country: None (occurrence: None)
  Receive Date: 20100428
  Receipt Date: 20100419
  Transmission Date: 20101027
  Serious: Yes (Other)
  Sender: FDA-Public Use
  Company Number: B0643571A

PATIENT
  Sex: Male

DRUGS (3)
  1. AVOLVE [Suspect]
     Indication: BENIGN PROSTATIC HYPERPLASIA
     Dosage: .5MG PER DAY
     Route: 048
     Dates: start: 20091126, end: 20100316
  2. EVIPROSTAT [Concomitant]
     Indication: BENIGN PROSTATIC HYPERPLASIA
     Route: 048
     Dates: start: 20090116
  3. UNKNOWN DRUG [Concomitant]
     Indication: BENIGN PROSTATIC HYPERPLASIA
     Dosage: 8MG PER DAY
     Route: 048
     Dates: start: 20070413

REACTIONS (2)
  - BALANITIS [None]
  - GENITAL HAEMORRHAGE [None]
